FAERS Safety Report 6618531-2 (Version None)
Quarter: 2010Q1

REPORT INFORMATION
  Report Type: 
  Country: None (occurrence: None)
  Receive Date: 20100308
  Receipt Date: 20100224
  Transmission Date: 20100710
  Serious: Yes (Death)
  Sender: FDA-Public Use
  Company Number: CA-PFIZER INC-2010023977

PATIENT
  Sex: Female

DRUGS (1)
  1. DETROL LA [Suspect]
     Indication: HYPERTONIC BLADDER
     Dosage: 4 MG, UNK
     Route: 048

REACTIONS (1)
  - DEATH [None]
